FAERS Safety Report 22015354 (Version 2)
Quarter: 2025Q2

REPORT INFORMATION
  Report Type: Spontaneous
  Country: MY (occurrence: MY)
  Receive Date: 20230221
  Receipt Date: 20250526
  Transmission Date: 20250717
  Serious: Yes (Hospitalization, Other)
  Sender: AUROBINDO
  Company Number: MY-AUROBINDO-AUR-APL-2023-007367

PATIENT
  Age: 68 Year
  Sex: Male

DRUGS (2)
  1. CEFUROXIME [Suspect]
     Active Substance: CEFUROXIME
     Indication: Osteomyelitis
     Route: 042
  2. CEFUROXIME [Suspect]
     Active Substance: CEFUROXIME
     Indication: Osteomyelitis
     Route: 048

REACTIONS (1)
  - Enterococcal bacteraemia [Not Recovered/Not Resolved]
